FAERS Safety Report 7572596-2 (Version None)
Quarter: 2011Q2

REPORT INFORMATION
  Report Type: 
  Country: None (occurrence: None)
  Receive Date: 20110627
  Receipt Date: 20110615
  Transmission Date: 20111010
  Serious: No
  Sender: FDA-Public Use
  Company Number: US-BIOGENIDEC-2011BI022242

PATIENT
  Sex: Female

DRUGS (1)
  1. TYSABRI [Suspect]
     Indication: MULTIPLE SCLEROSIS
     Route: 042
     Dates: start: 20080401

REACTIONS (9)
  - VAGINAL INFECTION [None]
  - ARTHRALGIA [None]
  - CYSTITIS [None]
  - SKIN ODOUR ABNORMAL [None]
  - JOINT STIFFNESS [None]
  - FATIGUE [None]
  - DYSPNOEA [None]
  - FEELING HOT [None]
  - ASTHMA [None]
